FAERS Safety Report 4366330-7 (Version None)
Quarter: 2004Q2

REPORT INFORMATION
  Report Type: 
  Country: None (occurrence: None)
  Receive Date: 20040527
  Receipt Date: 20030904
  Transmission Date: 20050107
  Serious: No
  Sender: FDA-Public Use
  Company Number: US-GLAXOSMITHKLINE-A0424684A

PATIENT
  Age: 6 Year
  Sex: Male

DRUGS (2)
  1. ALBUTEROL [Suspect]
     Indication: ASTHMA
     Dosage: 90MCG FOUR TIMES PER DAY
     Route: 055
  2. BENADRYL [Concomitant]

REACTIONS (1)
  - RASH [None]
